FAERS Safety Report 7392484-4 (Version None)
Quarter: 2011Q2

REPORT INFORMATION
  Report Type: 
  Country: None (occurrence: None)
  Receive Date: 20110404
  Receipt Date: 20110322
  Transmission Date: 20111010
  Serious: Yes (Other)
  Sender: FDA-Public Use
  Company Number: US-JNJFOC-20110309438

PATIENT
  Age: 54 Year
  Sex: Male
  Weight: 113.4 kg

DRUGS (6)
  1. SUDAFED 12 HOUR [Suspect]
     Indication: NASOPHARYNGITIS
     Dosage: TWO TABLETS
     Route: 048
  2. GARLIC [Concomitant]
     Route: 048
  3. SUDAFED 12 HOUR [Suspect]
     Route: 048
  4. ASCORBIC ACID [Concomitant]
     Route: 048
  5. LOVAZA [Concomitant]
     Route: 048
  6. CINNAMON [Concomitant]
     Route: 048

REACTIONS (4)
  - DYSURIA [None]
  - BLOOD URINE PRESENT [None]
  - OVERDOSE [None]
  - HAEMORRHAGE URINARY TRACT [None]
